FAERS Safety Report 4270883-7 (Version None)
Quarter: 2004Q1

REPORT INFORMATION
  Report Type: 
  Country: None (occurrence: None)
  Receive Date: 20040114
  Receipt Date: 20040107
  Transmission Date: 20041129
  Serious: Yes (Other)
  Sender: FDA-Public Use
  Company Number: PHEH2004US00601

PATIENT

DRUGS (1)
  1. ZELNORM [Suspect]
     Dosage: UNK, QD
     Route: 048
     Dates: start: 20030101

REACTIONS (2)
  - CHOLECYSTECTOMY [None]
  - LOOSE STOOLS [None]
